FAERS Safety Report 6781974-0 (Version None)
Quarter: 2010Q2

REPORT INFORMATION
  Report Type: 
  Country: None (occurrence: None)
  Receive Date: 20100621
  Receipt Date: 20100609
  Transmission Date: 20101027
  Serious: Yes (Hospitalization, Other)
  Sender: FDA-Public Use
  Company Number: B0661328A

PATIENT
  Age: 52 Year
  Sex: Male

DRUGS (9)
  1. SUCCINYLCHOLINE [Suspect]
     Route: 065
  2. METRONIDAZOLE [Suspect]
     Route: 065
  3. ATROPINE [Suspect]
     Route: 065
  4. SEVOFLURANE [Suspect]
     Route: 065
  5. NEOSTIGMINE [Suspect]
     Route: 065
  6. AMOXICILLIN AND CLAVULANATE POTASSIUM [Concomitant]
     Route: 042
  7. PROPOFOL [Concomitant]
     Route: 065
  8. ROCURONIUM [Concomitant]
     Route: 065
  9. FENTANYL [Concomitant]
     Route: 065

REACTIONS (6)
  - ARRHYTHMIA [None]
  - CARDIO-RESPIRATORY ARREST [None]
  - ELECTROCARDIOGRAM QT PROLONGED [None]
  - TORSADE DE POINTES [None]
  - VENTRICULAR FIBRILLATION [None]
  - VENTRICULAR TACHYCARDIA [None]
